FAERS Safety Report 12791238 (Version 1)
Quarter: 2016Q3

REPORT INFORMATION
  Report Type: Spontaneous
  Country: FR (occurrence: FR)
  Receive Date: 20160929
  Receipt Date: 20160929
  Transmission Date: 20161109
  Serious: Yes (Other)
  Sender: FDA-Public Use
  Company Number: FR-ROCHE-1835668

PATIENT
  Age: 53 Year
  Sex: Male

DRUGS (26)
  1. FASTURTEC [Concomitant]
     Active Substance: RASBURICASE
     Route: 065
     Dates: start: 20160803, end: 20160804
  2. TOPALGIC (FRANCE) [Concomitant]
     Active Substance: TRAMADOL
     Route: 065
  3. CISPLATINE [Suspect]
     Active Substance: CISPLATIN
     Route: 042
     Dates: start: 20160913
  4. DEXAMETHASONE. [Concomitant]
     Active Substance: DEXAMETHASONE
     Dosage: CYCLE 2
     Route: 042
     Dates: start: 20160823, end: 20160825
  5. DEXAMETHASONE. [Concomitant]
     Active Substance: DEXAMETHASONE
     Dosage: SUBSEQUENTLY RECEIVED ON 15/SEP/2016 AND 16/SEP/2016
     Route: 042
     Dates: start: 20160913
  6. FASTURTEC [Concomitant]
     Active Substance: RASBURICASE
     Route: 065
     Dates: start: 20160913
  7. CYTARABINE. [Concomitant]
     Active Substance: CYTARABINE
     Route: 065
     Dates: start: 20160802
  8. BACTRIM [Concomitant]
     Active Substance: SULFAMETHOXAZOLE\TRIMETHOPRIM
     Dosage: ON MORNING
     Route: 065
  9. ZOPHREN [Concomitant]
     Active Substance: ONDANSETRON
     Route: 065
  10. CISPLATINE [Suspect]
     Active Substance: CISPLATIN
     Dosage: SECOND CYCLE
     Route: 042
     Dates: start: 20160823
  11. PANTOPRAZOLE [Concomitant]
     Active Substance: PANTOPRAZOLE SODIUM
     Route: 065
  12. MABTHERA [Suspect]
     Active Substance: RITUXIMAB
     Dosage: SECOND CYCLE
     Route: 042
     Dates: start: 20160823
  13. CYTARABINE. [Concomitant]
     Active Substance: CYTARABINE
     Dosage: 2X4000 MG
     Route: 065
     Dates: start: 20160915
  14. POLARAMINE [Concomitant]
     Active Substance: DEXCHLORPHENIRAMINE MALEATE
     Route: 065
  15. PRIMPERAN [Concomitant]
     Active Substance: METOCLOPRAMIDE HYDROCHLORIDE
     Dosage: 10 MG 2 AMPULES 3 TIMES/DAY
     Route: 065
  16. LORATADINE. [Concomitant]
     Active Substance: LORATADINE
     Route: 065
  17. MABTHERA [Suspect]
     Active Substance: RITUXIMAB
     Dosage: THIRD CYCLE
     Route: 042
     Dates: start: 20160913
  18. FASTURTEC [Concomitant]
     Active Substance: RASBURICASE
     Route: 065
     Dates: start: 20160823
  19. CISPLATINE [Suspect]
     Active Substance: CISPLATIN
     Indication: MANTLE CELL LYMPHOMA
     Route: 042
     Dates: start: 20160801
  20. CYTARABINE. [Concomitant]
     Active Substance: CYTARABINE
     Dosage: 3950X2 MG
     Route: 042
     Dates: start: 20160825
  21. ZELITREX [Concomitant]
     Active Substance: VALACYCLOVIR HYDROCHLORIDE
     Route: 065
     Dates: start: 201608
  22. ALLOPURINOL. [Concomitant]
     Active Substance: ALLOPURINOL
     Route: 065
     Dates: start: 20160805
  23. MABTHERA [Suspect]
     Active Substance: RITUXIMAB
     Indication: MANTLE CELL LYMPHOMA
     Dosage: FIRST CYCLE DAY 4 (C1D4)
     Route: 042
     Dates: start: 20160804
  24. DEXAMETHASONE. [Concomitant]
     Active Substance: DEXAMETHASONE
     Dosage: C1D1
     Route: 065
     Dates: start: 20160801, end: 20160801
  25. DEXAMETHASONE. [Concomitant]
     Active Substance: DEXAMETHASONE
     Dosage: ON DAY 2, 3 AND 4 IN CYCLE 1
     Route: 065
     Dates: start: 20160802, end: 20160804
  26. SOLU-MEDROL [Concomitant]
     Active Substance: METHYLPREDNISOLONE SODIUM SUCCINATE
     Dosage: 1 INJECTION
     Route: 042

REACTIONS (4)
  - Product use issue [Unknown]
  - Thrombocytopenia [Recovered/Resolved]
  - Sense of oppression [Recovered/Resolved]
  - Off label use [Unknown]

NARRATIVE: CASE EVENT DATE: 20160804
